FAERS Safety Report 20074428 (Version 1)
Quarter: 2021Q4

REPORT INFORMATION
  Report Type: Spontaneous
  Country: US (occurrence: None)
  Receive Date: 20211115
  Receipt Date: 20211115
  Transmission Date: 20220304
  Serious: No
  Sender: FDA-Public Use
  Company Number: None

PATIENT
  Age: 57 Year
  Sex: Male
  Weight: 91.9 kg

DRUGS (7)
  1. CISPLATIN [Suspect]
     Active Substance: CISPLATIN
     Indication: Cholangiocarcinoma
     Dosage: OTHER FREQUENCY : EVERY 2 WEEKS;?
     Dates: start: 20210406
  2. DIPHENHYDRAMINE [Concomitant]
     Active Substance: DIPHENHYDRAMINE
     Dates: end: 20211115
  3. DEXAMETHASONE [Concomitant]
     Active Substance: DEXAMETHASONE
     Dates: end: 20211115
  4. FAMOTIDINE [Concomitant]
     Active Substance: FAMOTIDINE
     Dates: end: 20211115
  5. MONTELUKAST [Concomitant]
     Active Substance: MONTELUKAST SODIUM
     Dates: end: 20211115
  6. PALONOSETRON [Concomitant]
     Active Substance: PALONOSETRON
     Dates: end: 20211115
  7. APREPITANT [Concomitant]
     Active Substance: APREPITANT
     Dates: end: 20211115

REACTIONS (2)
  - Pruritus [None]
  - Infusion related reaction [None]

NARRATIVE: CASE EVENT DATE: 20211112
